FAERS Safety Report 13321869 (Version 1)
Quarter: 2017Q1

REPORT INFORMATION
  Report Type: Spontaneous
  Country: US (occurrence: US)
  Receive Date: 20170310
  Receipt Date: 20170310
  Transmission Date: 20170428
  Serious: Yes (Hospitalization)
  Sender: FDA-Public Use
  Company Number: None

PATIENT
  Age: 65 Year
  Sex: Female
  Weight: 43.2 kg

DRUGS (1)
  1. MEMANTINE HYDROCHLORIDE. [Suspect]
     Active Substance: MEMANTINE HYDROCHLORIDE
     Dates: end: 20170213

REACTIONS (4)
  - Sinus tachycardia [None]
  - Electrocardiogram QRS complex abnormal [None]
  - Pleural effusion [None]
  - Lung adenocarcinoma [None]

NARRATIVE: CASE EVENT DATE: 20170126
